FAERS Safety Report 25732721 (Version 2)
Quarter: 2025Q3

REPORT INFORMATION
  Report Type: Report from Study
  Country: CN (occurrence: CN)
  Receive Date: 20250827
  Receipt Date: 20250901
  Transmission Date: 20251020
  Serious: Yes (Death)
  Sender: BEIGENE
  Company Number: CN-ROCHE-10000290619

PATIENT
  Age: 82 Year
  Weight: 70.3 kg

DRUGS (8)
  1. BRUKINSA [Suspect]
     Active Substance: ZANUBRUTINIB
     Indication: Diffuse large B-cell lymphoma
  2. LENALIDOMIDE [Suspect]
     Active Substance: LENALIDOMIDE
     Indication: Diffuse large B-cell lymphoma
  3. POLATUZUMAB VEDOTIN [Suspect]
     Active Substance: POLATUZUMAB VEDOTIN
     Indication: Diffuse large B-cell lymphoma
  4. RITUXIMAB [Suspect]
     Active Substance: RITUXIMAB
     Indication: Diffuse large B-cell lymphoma
  5. SULFAMETHOXAZOLE [Concomitant]
     Active Substance: SULFAMETHOXAZOLE
  6. LEUCOGEN [Concomitant]
     Active Substance: LEUCOGEN
     Indication: Prophylaxis
  7. CEFACLOR [Concomitant]
     Active Substance: CEFACLOR
     Indication: Adverse event
  8. ENTECAVIR [Concomitant]
     Active Substance: ENTECAVIR

REACTIONS (2)
  - Death [Fatal]
  - Off label use [Unknown]
